FAERS Safety Report 9159945 (Version 1)
Quarter: 2013Q1

REPORT INFORMATION
  Report Type: Spontaneous
  Country: US (occurrence: US)
  Receive Date: 20130313
  Receipt Date: 20130313
  Transmission Date: 20140127
  Serious: No
  Sender: FDA-Public Use
  Company Number: US-TEVA-391098USA

PATIENT
  Sex: Male

DRUGS (1)
  1. ACTIQ [Suspect]

REACTIONS (2)
  - Pain [Unknown]
  - Drug dose omission [Unknown]
